FAERS Safety Report 10553848 (Version 1)
Quarter: 2014Q4

REPORT INFORMATION
  Report Type: Spontaneous
  Country: US (occurrence: None)
  Receive Date: 20141028
  Receipt Date: 20141028
  Transmission Date: 20150529
  Serious: Yes (Death)
  Sender: FDA-Public Use
  Company Number: HYP201410-000079

PATIENT
  Age: 36 Year
  Sex: Female

DRUGS (6)
  1. RAVICTI [Suspect]
     Active Substance: GLYCEROL PHENYLBUTYRATE
     Indication: UREA CYCLE ENZYME DEFICIENCY
     Dates: start: 20130613
  2. LUNESTA [Concomitant]
     Active Substance: ESZOPICLONE
  3. CITRULLINE [Concomitant]
     Active Substance: CITRULLINE
  4. ZOFRAN (ONDANSETRON) [Concomitant]
  5. SOMA [Concomitant]
     Active Substance: CARISOPRODOL
  6. LORTAB (LORATADINE) [Concomitant]

REACTIONS (1)
  - Completed suicide [None]

NARRATIVE: CASE EVENT DATE: 20141017
